FAERS Safety Report 8042669-9 (Version None)
Quarter: 2012Q1

REPORT INFORMATION
  Report Type: 
  Country: None (occurrence: None)
  Receive Date: 20120112
  Receipt Date: 20120109
  Transmission Date: 20120608
  Serious: Yes (Life-Threatening)
  Sender: FDA-Public Use
  Company Number: US-MERCK-1112USA01804

PATIENT
  Age: 63 Year
  Sex: Female

DRUGS (2)
  1. HYZAAR [Suspect]
     Indication: HYPERTENSION
     Route: 048
     Dates: start: 20111211, end: 20111212
  2. HYZAAR [Suspect]
     Route: 048

REACTIONS (5)
  - SWELLING FACE [None]
  - DRUG HYPERSENSITIVITY [None]
  - THROAT IRRITATION [None]
  - DIZZINESS [None]
  - DYSPNOEA [None]
